FAERS Safety Report 4906577-1 (Version None)
Quarter: 2006Q1

REPORT INFORMATION
  Report Type: 
  Country: None (occurrence: None)
  Receive Date: 20060206
  Receipt Date: 20060124
  Transmission Date: 20060701
  Serious: Yes (Hospitalization, Other)
  Sender: FDA-Public Use
  Company Number: HQWYE429014JUN05

PATIENT
  Age: 50 Year
  Sex: Female

DRUGS (18)
  1. RAPAMUNE [Suspect]
     Indication: IMMUNOSUPPRESSANT DRUG THERAPY
     Dosage: 2 MG 1X PER 1 DAY ORAL; SEE IMAGE
     Route: 048
     Dates: start: 20050501, end: 20050531
  2. RAPAMUNE [Suspect]
     Indication: PROPHYLAXIS AGAINST TRANSPLANT REJECTION
     Dosage: 2 MG 1X PER 1 DAY ORAL; SEE IMAGE
     Route: 048
     Dates: start: 20050501, end: 20050531
  3. RAPAMUNE [Suspect]
     Indication: IMMUNOSUPPRESSANT DRUG THERAPY
     Dosage: 2 MG 1X PER 1 DAY ORAL; SEE IMAGE
     Route: 048
     Dates: start: 20050601, end: 20050601
  4. RAPAMUNE [Suspect]
     Indication: PROPHYLAXIS AGAINST TRANSPLANT REJECTION
     Dosage: 2 MG 1X PER 1 DAY ORAL; SEE IMAGE
     Route: 048
     Dates: start: 20050601, end: 20050601
  5. RAPAMUNE [Suspect]
     Indication: IMMUNOSUPPRESSANT DRUG THERAPY
     Dosage: 2 MG 1X PER 1 DAY ORAL; SEE IMAGE
     Route: 048
     Dates: start: 20050602, end: 20050610
  6. RAPAMUNE [Suspect]
     Indication: PROPHYLAXIS AGAINST TRANSPLANT REJECTION
     Dosage: 2 MG 1X PER 1 DAY ORAL; SEE IMAGE
     Route: 048
     Dates: start: 20050602, end: 20050610
  7. RAPAMUNE [Suspect]
     Indication: IMMUNOSUPPRESSANT DRUG THERAPY
     Dosage: 2 MG 1X PER 1 DAY ORAL; SEE IMAGE
     Route: 048
     Dates: start: 20050611, end: 20051205
  8. RAPAMUNE [Suspect]
     Indication: PROPHYLAXIS AGAINST TRANSPLANT REJECTION
     Dosage: 2 MG 1X PER 1 DAY ORAL; SEE IMAGE
     Route: 048
     Dates: start: 20050611, end: 20051205
  9. RAPAMUNE [Suspect]
     Indication: IMMUNOSUPPRESSANT DRUG THERAPY
     Dosage: 2 MG 1X PER 1 DAY ORAL; SEE IMAGE
     Route: 048
     Dates: start: 20051206
  10. RAPAMUNE [Suspect]
     Indication: PROPHYLAXIS AGAINST TRANSPLANT REJECTION
     Dosage: 2 MG 1X PER 1 DAY ORAL; SEE IMAGE
     Route: 048
     Dates: start: 20051206
  11. SODIUM BICARBONATE IN PLASTIC CONTAINER [Concomitant]
  12. VALIUM [Concomitant]
  13. NORTRIPTYLINE HCL [Concomitant]
  14. AMLODIPINE [Concomitant]
  15. FUROSEMIDE [Concomitant]
  16. INSULIN HUMAN (INSULIN HUMAN) [Concomitant]
  17. PREDNISONE [Concomitant]
  18. CYCLOSPORINE [Concomitant]

REACTIONS (2)
  - DRUG INEFFECTIVE [None]
  - KIDNEY TRANSPLANT REJECTION [None]
